FAERS Safety Report 10181555 (Version 1)
Quarter: 2014Q2

REPORT INFORMATION
  Report Type: Spontaneous
  Country: BR (occurrence: BR)
  Receive Date: 20140519
  Receipt Date: 20140519
  Transmission Date: 20141212
  Serious: Yes (Hospitalization)
  Sender: FDA-Public Use
  Company Number: BR-GLAXOSMITHKLINE-A1073605A

PATIENT
  Age: 7 Month
  Sex: Female
  Weight: 10.5 kg

DRUGS (7)
  1. FLIXOTIDE [Suspect]
     Indication: ASTHMA
     Dosage: 2SPR TWICE PER DAY
     Route: 048
     Dates: start: 201208, end: 201308
  2. MONTELUKAST SODIUM [Suspect]
     Indication: ASTHMA
     Dosage: 1SAC PER DAY
     Route: 048
     Dates: start: 201208
  3. AEROLIN [Suspect]
     Indication: ASTHMATIC CRISIS
     Dosage: 4U FOUR TIMES PER DAY
     Route: 065
     Dates: start: 201211
  4. SERETIDE [Suspect]
     Indication: ASTHMA
     Dosage: 2U TWICE PER DAY
     Route: 048
     Dates: start: 201308
  5. MOTILIUM [Concomitant]
  6. RANITIDINE [Concomitant]
  7. SODIUM CHLORIDE [Concomitant]

REACTIONS (2)
  - Pneumonia [Not Recovered/Not Resolved]
  - Overdose [Not Recovered/Not Resolved]
